FAERS Safety Report 8786323 (Version 1)
Quarter: 2012Q4

REPORT INFORMATION
  Report Type: Spontaneous
  Country: NL (occurrence: None)
  Receive Date: 20120905
  Receipt Date: 20120905
  Transmission Date: 20130627
  Serious: Yes (Other)
  Sender: FDA-Public Use
  Company Number: 1393615

PATIENT

DRUGS (1)
  1. PACLITAXEL [Suspect]
     Indication: DRUG USE FOR UNKNOWN INDICATION

REACTIONS (7)
  - Anaphylactic shock [None]
  - Discomfort [None]
  - Anxiety [None]
  - Erythema [None]
  - Chest pain [None]
  - Back pain [None]
  - Pain in extremity [None]
